FAERS Safety Report 6806948-2 (Version None)
Quarter: 2010Q2

REPORT INFORMATION
  Report Type: 
  Country: None (occurrence: None)
  Receive Date: 20100629
  Receipt Date: 20080625
  Transmission Date: 20101027
  Serious: No
  Sender: FDA-Public Use
  Company Number: US-PFIZER INC-2008051317

PATIENT
  Sex: Male
  Weight: 90.9 kg

DRUGS (6)
  1. XANAX [Suspect]
  2. SERTRALINE HCL [Interacting]
     Indication: DEPRESSION
     Route: 048
     Dates: start: 20080613, end: 20080617
  3. SAM-E [Interacting]
     Dates: start: 20080617
  4. LEVOXYL [Concomitant]
  5. LISINOPRIL [Concomitant]
  6. LIPITOR [Concomitant]

REACTIONS (4)
  - ANXIETY [None]
  - DRUG INTERACTION [None]
  - FEELING ABNORMAL [None]
  - MALAISE [None]
